FAERS Safety Report 13139217 (Version 1)
Quarter: 2017Q1

REPORT INFORMATION
  Report Type: Spontaneous
  Country: FR (occurrence: FR)
  Receive Date: 20170123
  Receipt Date: 20170123
  Transmission Date: 20170428
  Serious: Yes (Hospitalization)
  Sender: FDA-Public Use
  Company Number: FR-PFIZER INC-2017019121

PATIENT
  Age: 84 Year
  Sex: Male

DRUGS (7)
  1. ALLOPURINOL. [Suspect]
     Active Substance: ALLOPURINOL
     Indication: GOUT
     Dosage: UNK
     Route: 048
     Dates: end: 20161103
  2. NEOMERCAZOLE [Suspect]
     Active Substance: CARBIMAZOLE
     Indication: BASEDOW^S DISEASE
     Dosage: UNK
     Route: 048
     Dates: end: 20161103
  3. ZANIDIP [Suspect]
     Active Substance: LERCANIDIPINE HYDROCHLORIDE
     Indication: HYPERTENSION
     Dosage: UNK
     Route: 048
     Dates: end: 20161103
  4. KENZEN [Suspect]
     Active Substance: CANDESARTAN
     Indication: HYPERTENSION
     Dosage: UNK
     Route: 048
     Dates: end: 20161103
  5. KARDEGIC [Suspect]
     Active Substance: ASPIRIN LYSINE
     Dosage: UNK
     Route: 048
     Dates: end: 20161103
  6. PREVISCAN /00789001/ [Suspect]
     Active Substance: FLUINDIONE
     Dosage: UNK
     Route: 048
     Dates: end: 20161103
  7. TAHOR [Suspect]
     Active Substance: ATORVASTATIN CALCIUM
     Dosage: UNK
     Route: 048
     Dates: end: 20161103

REACTIONS (2)
  - Haemolytic anaemia [Recovered/Resolved]
  - Haematoma [Recovered/Resolved]

NARRATIVE: CASE EVENT DATE: 20161103
